FAERS Safety Report 21614280 (Version 6)
Quarter: 2022Q4

REPORT INFORMATION
  Report Type: Report from Study
  Country: NL (occurrence: NL)
  Receive Date: 20221118
  Receipt Date: 20221215
  Transmission Date: 20230113
  Serious: Yes (Hospitalization, Other)
  Sender: FDA-Public Use
  Company Number: NL-002147023-NVSC2022NL256484

PATIENT
  Age: 45 Year
  Sex: Male
  Weight: 109.6 kg

DRUGS (10)
  1. ALPELISIB [Suspect]
     Active Substance: ALPELISIB
     Indication: PIK3CA related overgrowth spectrum
     Dosage: UNK
     Route: 048
     Dates: start: 20220822
  2. ALPELISIB [Suspect]
     Active Substance: ALPELISIB
     Indication: PIK3CA related overgrowth spectrum
     Dosage: UNK
     Route: 065
     Dates: start: 20220425
  3. INVESTIGATIONAL PRODUCT [Suspect]
     Active Substance: INVESTIGATIONAL PRODUCT
     Indication: PIK3CA related overgrowth spectrum
     Dosage: UNK
     Route: 065
     Dates: start: 20220425
  4. PLACEBO [Suspect]
     Active Substance: UNSPECIFIED INGREDIENT
     Indication: PIK3CA related overgrowth spectrum
     Dosage: UNK
     Route: 065
     Dates: start: 20220425
  5. NAPROXEN [Concomitant]
     Active Substance: NAPROXEN
     Indication: PIK3CA related overgrowth spectrum
     Dosage: UNK
     Route: 065
     Dates: start: 1997
  6. TRAMADOL [Concomitant]
     Active Substance: TRAMADOL
     Indication: PIK3CA related overgrowth spectrum
     Dosage: UNK
     Route: 065
     Dates: start: 1997
  7. ACETAMINOPHEN [Concomitant]
     Active Substance: ACETAMINOPHEN
     Indication: Pharyngitis
     Dosage: UNK
     Route: 065
     Dates: start: 20221024
  8. ACETAMINOPHEN [Concomitant]
     Active Substance: ACETAMINOPHEN
     Indication: Pneumonia
  9. AUGMENTIN [Concomitant]
     Active Substance: AMOXICILLIN\CLAVULANATE POTASSIUM
     Indication: Pneumonia
     Dosage: UNK
     Route: 065
     Dates: start: 20221112, end: 20221129
  10. TEMAZEPAM [Concomitant]
     Active Substance: TEMAZEPAM
     Indication: Insomnia
     Dosage: UNK
     Route: 065
     Dates: start: 20221114

REACTIONS (4)
  - Pneumonia bacterial [Not Recovered/Not Resolved]
  - COVID-19 [Recovered/Resolved]
  - Renal impairment [Recovered/Resolved]
  - Venolymphatic malformation [Not Recovered/Not Resolved]

NARRATIVE: CASE EVENT DATE: 20221114
